FAERS Safety Report 15361179 (Version 1)
Quarter: 2018Q3

REPORT INFORMATION
  Report Type: Spontaneous
  Country: US (occurrence: US)
  Receive Date: 20180907
  Receipt Date: 20180907
  Transmission Date: 20181010
  Serious: Yes (Other)
  Sender: FDA-Public Use
  Company Number: US-ASTELLAS-2018US039517

PATIENT
  Age: 82 Year
  Sex: Male

DRUGS (1)
  1. XTANDI [Suspect]
     Active Substance: ENZALUTAMIDE
     Indication: PROSTATE CANCER
     Route: 048
     Dates: start: 20170118, end: 20180804

REACTIONS (3)
  - Oesophageal carcinoma [Unknown]
  - Dysphagia [Unknown]
  - Product size issue [Unknown]

NARRATIVE: CASE EVENT DATE: 20180804
